FAERS Safety Report 25018028 (Version 1)
Quarter: 2025Q1

REPORT INFORMATION
  Report Type: Spontaneous
  Country: US (occurrence: US)
  Receive Date: 20250227
  Receipt Date: 20250227
  Transmission Date: 20250408
  Serious: Yes (Hospitalization)
  Sender: AMGEN
  Company Number: US-AMGEN-USASP2025033996

PATIENT
  Age: 28 Year
  Sex: Male

DRUGS (5)
  1. INFLIXIMAB [Suspect]
     Active Substance: INFLIXIMAB
     Indication: Vasculitis
     Dosage: UNK, QMO
     Route: 065
  2. INFLIXIMAB [Suspect]
     Active Substance: INFLIXIMAB
     Dosage: 100 MILLIGRAM, QMO
     Route: 065
  3. LORAZEPAM [Concomitant]
     Active Substance: LORAZEPAM
     Indication: Seizure
     Route: 040
  4. ETOMIDATE [Concomitant]
     Active Substance: ETOMIDATE
     Route: 040
  5. ROCURONIUM [Concomitant]
     Active Substance: ROCURONIUM BROMIDE
     Route: 040

REACTIONS (7)
  - Central nervous system lesion [Unknown]
  - Behcet^s syndrome [Unknown]
  - Encephalitis herpes [Unknown]
  - Cerebral infarction [Unknown]
  - Sepsis [Unknown]
  - Drug effective for unapproved indication [Unknown]
  - Off label use [Unknown]
